FAERS Safety Report 15579423 (Version 1)
Quarter: 2018Q4

REPORT INFORMATION
  Report Type: Spontaneous
  Country: US (occurrence: US)
  Receive Date: 20181102
  Receipt Date: 20181102
  Transmission Date: 20190205
  Serious: No
  Sender: FDA-Public Use
  Company Number: US-MIKART, INC.-2058335

PATIENT
  Age: 71 Year

DRUGS (3)
  1. HYDROCODONE BITARTRATE AND ACETAMINOPHEN [Suspect]
     Active Substance: ACETAMINOPHEN\HYDROCODONE BITARTRATE
     Indication: SCIATICA
     Route: 048
     Dates: start: 20180918
  2. HUMIRA [Concomitant]
     Active Substance: ADALIMUMAB
     Dates: start: 20180628
  3. IRON THERAPY [Concomitant]
     Route: 042

REACTIONS (2)
  - Abnormal faeces [Unknown]
  - Dizziness [Unknown]

NARRATIVE: CASE EVENT DATE: 20180918
